FAERS Safety Report 24682288 (Version 1)
Quarter: 2024Q4

REPORT INFORMATION
  Report Type: Spontaneous
  Country: GB (occurrence: GB)
  Receive Date: 20241130
  Receipt Date: 20241130
  Transmission Date: 20250115
  Serious: Yes (Life-Threatening, Other)
  Sender: ACCORD
  Company Number: None

PATIENT
  Age: 84 Year
  Sex: Female
  Weight: 78 kg

DRUGS (5)
  1. AMITRIPTYLINE [Suspect]
     Active Substance: AMITRIPTYLINE
     Indication: Product used for unknown indication
     Dosage: 10MG TABLETS 2 AT NIGHT
     Dates: start: 20240821, end: 20241111
  2. IBUPROFEN [Concomitant]
     Active Substance: IBUPROFEN
     Dosage: APPLY THREE TIM, 10%
     Dates: start: 20240821
  3. COCODAMOL [Concomitant]
     Active Substance: ACETAMINOPHEN\CODEINE PHOSPHATE
     Dosage: 1 TABLET UP TO, 30MG/500MG TABL ETS
     Dates: start: 20240925
  4. LACTULOSE [Concomitant]
     Active Substance: LACTULOSE
     Dosage: 10-15ML TWICE A, 3.1-3.7G/5ML ORAL SOLUTION
     Dates: start: 20241111
  5. AMITRIPTYLINE [Suspect]
     Active Substance: AMITRIPTYLINE
     Indication: Product used for unknown indication
     Dosage: EVERY NIGHT 10MG/5ML ORAL SOLUTION SUGAR FREE
     Dates: start: 20240821, end: 20241111

REACTIONS (3)
  - Electrocardiogram QT prolonged [Unknown]
  - Sinus tachycardia [Not Recovered/Not Resolved]
  - Conduction disorder [Recovered/Resolved]

NARRATIVE: CASE EVENT DATE: 20241111
